FAERS Safety Report 13518433 (Version 1)
Quarter: 2017Q2

REPORT INFORMATION
  Report Type: Spontaneous
  Country: US (occurrence: US)
  Receive Date: 20170505
  Receipt Date: 20170505
  Transmission Date: 20170830
  Serious: Yes (Hospitalization, Other)
  Sender: FDA-Public Use
  Company Number: US-INDIVIOR LIMITED-INDV-101113-2017

PATIENT
  Age: 65 Year
  Sex: Male
  Weight: 88.44 kg

DRUGS (1)
  1. SUBOXONE [Suspect]
     Active Substance: BUPRENORPHINE HYDROCHLORIDE\NALOXONE HYDROCHLORIDE
     Indication: PAIN
     Dosage: 8 MG, BID
     Route: 060
     Dates: start: 2013

REACTIONS (11)
  - Renal impairment [Unknown]
  - Cardiac function test abnormal [Unknown]
  - Cardiac disorder [Unknown]
  - Hepatic failure [Unknown]
  - Off label use [Unknown]
  - Intentional underdose [Unknown]
  - Product use issue [Unknown]
  - Weight decreased [Unknown]
  - Pain [Unknown]
  - Dementia [Unknown]
  - Condition aggravated [Unknown]

NARRATIVE: CASE EVENT DATE: 2013
